FAERS Safety Report 9290228 (Version 2)
Quarter: 2013Q2

REPORT INFORMATION
  Report Type: Spontaneous
  Country: IN (occurrence: IN)
  Receive Date: 20130515
  Receipt Date: 20130603
  Transmission Date: 20140414
  Serious: Yes (Other)
  Sender: FDA-Public Use
  Company Number: IN-JNJFOC-20130505378

PATIENT
  Age: 7 Month
  Sex: Male

DRUGS (3)
  1. INFLIXIMAB, RECOMBINANT [Suspect]
     Indication: OFF LABEL USE
     Route: 042
  2. IMMUNOGLOBULIN [Concomitant]
     Route: 042
  3. METHYLPREDNISOLONE [Concomitant]
     Route: 065

REACTIONS (1)
  - Drug ineffective for unapproved indication [Unknown]
